FAERS Safety Report 6172899-2 (Version None)
Quarter: 2009Q2

REPORT INFORMATION
  Report Type: 
  Country: None (occurrence: None)
  Receive Date: 20090430
  Receipt Date: 20090420
  Transmission Date: 20091009
  Serious: Yes (Other)
  Sender: FDA-Public Use
  Company Number: PHHY2009JP09924

PATIENT
  Age: 69 Year
  Sex: Male

DRUGS (6)
  1. COMTAN [Suspect]
     Indication: PARKINSON'S DISEASE
     Dosage: 300 MG/DAY
     Route: 048
     Dates: start: 20080801, end: 20090317
  2. COMTAN [Suspect]
     Dosage: 1 TAB THRICE DAILY
     Route: 048
  3. COMTAN [Suspect]
     Dosage: 300 MG/DAY
     Route: 048
     Dates: start: 20090401
  4. EC DOPARL [Concomitant]
     Indication: PARKINSON'S DISEASE
     Dosage: UNK
     Route: 048
  5. PRAMIPEXOLE DIHYDROCHLORIDE [Concomitant]
     Indication: PARKINSON'S DISEASE
     Dosage: UNK
     Route: 048
  6. ARTANE [Concomitant]
     Dosage: UNK
     Route: 048
     Dates: start: 20090401

REACTIONS (2)
  - ABNORMAL BEHAVIOUR [None]
  - DYSKINESIA [None]
